FAERS Safety Report 9662297 (Version 2)
Quarter: 2013Q4

REPORT INFORMATION
  Report Type: Spontaneous
  Country: US (occurrence: US)
  Receive Date: 20131031
  Receipt Date: 20131031
  Transmission Date: 20140711
  Serious: No
  Sender: FDA-Public Use
  Company Number: US-PURDUE-USA-2010-0050344

PATIENT
  Age: 57 Year
  Sex: Male

DRUGS (3)
  1. OXYCONTIN (NDA 22-272) [Suspect]
     Indication: PAIN
     Dosage: 400 MG, QID
     Dates: start: 20100918
  2. OXYCONTIN (NDA 22-272) [Suspect]
     Dosage: 40 MG, BID
  3. ROXICET [Concomitant]
     Indication: BREAKTHROUGH PAIN
     Dosage: 30 MG, UNK
     Route: 048

REACTIONS (8)
  - Medication residue present [Not Recovered/Not Resolved]
  - Sputum increased [Not Recovered/Not Resolved]
  - Therapeutic response delayed [Not Recovered/Not Resolved]
  - Drug ineffective [Not Recovered/Not Resolved]
  - Malaise [Not Recovered/Not Resolved]
  - Insomnia [Unknown]
  - Product quality issue [Unknown]
  - Asthenia [Unknown]
